FAERS Safety Report 21174978 (Version 1)
Quarter: 2022Q3

REPORT INFORMATION
  Report Type: Spontaneous
  Country: US (occurrence: US)
  Receive Date: 20220805
  Receipt Date: 20220805
  Transmission Date: 20221027
  Serious: Yes (Other)
  Sender: FDA-Public Use
  Company Number: US-Accord-253436

PATIENT
  Age: 66 Year
  Sex: Female
  Weight: 67.13 kg

DRUGS (8)
  1. DOCETAXEL [Suspect]
     Active Substance: DOCETAXEL
     Indication: Breast cancer
     Dosage: EVERY THREE WEEK
     Dates: start: 201402, end: 20140417
  2. PARAPLATIN [Concomitant]
     Active Substance: CARBOPLATIN
     Indication: Breast cancer
  3. NEOSAR [Concomitant]
     Active Substance: CYCLOPHOSPHAMIDE
     Indication: Breast cancer
  4. ALOXI [Concomitant]
     Active Substance: PALONOSETRON HYDROCHLORIDE
     Indication: Breast cancer
  5. TAXOTERE [Concomitant]
     Active Substance: DOCETAXEL
  6. PROCRIT [Concomitant]
     Active Substance: ERYTHROPOIETIN
  7. DEXAMETHASONE [Concomitant]
     Active Substance: DEXAMETHASONE
  8. ADRIAMYCIN [Concomitant]
     Active Substance: DOXORUBICIN HYDROCHLORIDE

REACTIONS (1)
  - Alopecia [Not Recovered/Not Resolved]

NARRATIVE: CASE EVENT DATE: 20140101
